FAERS Safety Report 7057658-0 (Version None)
Quarter: 2010Q4

REPORT INFORMATION
  Report Type: 
  Country: None (occurrence: None)
  Receive Date: 20101022
  Receipt Date: 20101014
  Transmission Date: 20110411
  Serious: Yes (Hospitalization)
  Sender: FDA-Public Use
  Company Number: DE-ROCHE-734980

PATIENT
  Sex: Male
  Weight: 73.5 kg

DRUGS (1)
  1. XELODA [Suspect]
     Route: 048

REACTIONS (4)
  - COAGULOPATHY [None]
  - DIARRHOEA [None]
  - LEUKOPENIA [None]
  - PALMAR-PLANTAR ERYTHRODYSAESTHESIA SYNDROME [None]
